FAERS Safety Report 22072150 (Version 2)
Quarter: 2023Q1

REPORT INFORMATION
  Report Type: Report from Study
  Country: GB (occurrence: GB)
  Receive Date: 20230308
  Receipt Date: 20230316
  Transmission Date: 20230418
  Serious: Yes (Other)
  Sender: FDA-Public Use
  Company Number: GB-TEVA-2023-GB-2863606

PATIENT

DRUGS (1)
  1. TOPIRAMATE [Suspect]
     Active Substance: TOPIRAMATE
     Indication: Epilepsy
     Dosage: 300 MILLIGRAM DAILY;
     Route: 064

REACTIONS (4)
  - Behaviour disorder [Unknown]
  - Autism spectrum disorder [Unknown]
  - Learning disorder [Unknown]
  - Foetal exposure during pregnancy [Unknown]
